FAERS Safety Report 10159109 (Version 1)
Quarter: 2014Q2

REPORT INFORMATION
  Report Type: Spontaneous
  Country: US (occurrence: US)
  Receive Date: 20140508
  Receipt Date: 20140508
  Transmission Date: 20141212
  Serious: Yes (Other)
  Sender: FDA-Public Use
  Company Number: US-UCBSA-120342

PATIENT
  Sex: 0

DRUGS (8)
  1. VIMPAT [Suspect]
  2. KEPPRA [Suspect]
  3. TOPOMAX [Concomitant]
  4. PHENOBARBITAL [Concomitant]
  5. KLONOPIN [Concomitant]
  6. ATIVAN [Concomitant]
  7. NEURONTIN [Concomitant]
  8. TRILEPTAL [Concomitant]

REACTIONS (2)
  - Neoplasm [Unknown]
  - Generalised tonic-clonic seizure [Unknown]
